FAERS Safety Report 9401443 (Version 2)
Quarter: 2013Q3

REPORT INFORMATION
  Report Type: Spontaneous
  Country: US (occurrence: US)
  Receive Date: 20130716
  Receipt Date: 20130809
  Transmission Date: 20140515
  Serious: Yes (Other)
  Sender: FDA-Public Use
  Company Number: US-AMGEN-USASP2013048607

PATIENT
  Age: 57 Year
  Sex: Female
  Weight: 73.92 kg

DRUGS (3)
  1. NPLATE [Suspect]
     Indication: IMMUNE THROMBOCYTOPENIC PURPURA
     Dosage: 150 MUG, Q3WK
     Route: 065
     Dates: start: 200901
  2. ANALGESICS [Concomitant]
  3. ANTIHYPERTENSIVES [Concomitant]

REACTIONS (2)
  - Cataract [Unknown]
  - Headache [Unknown]
